FAERS Safety Report 9241136 (Version 1)
Quarter: 2013Q1

REPORT INFORMATION
  Report Type: Spontaneous
  Country: US (occurrence: None)
  Receive Date: 20121120
  Receipt Date: 20121120
  Transmission Date: 20140127
  Serious: No
  Sender: FDA-Public Use
  Company Number: 1000038499

PATIENT
  Age: 63 Year
  Sex: Male

DRUGS (4)
  1. VIIBRYD (VILAZDONE HYDROCHLORIDE) (10 MILLIGRAM, TABLETS) [Suspect]
     Indication: DEPRESSION
     Dosage: 10 MG (10 MG, 1 IN 1 D), ORAL
     Route: 048
     Dates: start: 20120901, end: 20120907
  2. PROTONIX (PANTOPRAZOLE SODIUM SESQUIHYDRATE)) (PANTOPRAZOLE SODIUM SESQUIHYDRATE( [Concomitant]
  3. SIMVASTATIN (SIMVASTATIN)(SIMVASTATIN) [Concomitant]
  4. BENICARE (OLMESARTAN MEDOXOMIL) (OLMESARTAN MEDOXOMIL) [Concomitant]

REACTIONS (3)
  - Diarrhoea [None]
  - Gastrooesophageal reflux disease [None]
  - Insomnia [None]
